FAERS Safety Report 8364466-7 (Version None)
Quarter: 2012Q2

REPORT INFORMATION
  Report Type: 
  Country: None (occurrence: None)
  Receive Date: 20120516
  Receipt Date: 20120508
  Transmission Date: 20120825
  Serious: Yes (Hospitalization)
  Sender: FDA-Public Use
  Company Number: CA-JNJFOC-20120509845

PATIENT
  Sex: Male
  Weight: 95.26 kg

DRUGS (6)
  1. CELEXA [Concomitant]
     Route: 065
  2. REMICADE [Suspect]
     Indication: ANKYLOSING SPONDYLITIS
     Route: 042
     Dates: start: 20100510
  3. SULFASALAZINE [Concomitant]
     Route: 065
  4. METHOTREXATE [Concomitant]
     Route: 065
  5. PRADAXA [Concomitant]
     Route: 065
  6. PAIN MEDICATION [Concomitant]
     Route: 065

REACTIONS (1)
  - HIP ARTHROPLASTY [None]
